FAERS Safety Report 9062382 (Version 1)
Quarter: 2013Q1

REPORT INFORMATION
  Report Type: Spontaneous
  Country: JP (occurrence: JP)
  Receive Date: 20130213
  Receipt Date: 20130213
  Transmission Date: 20140127
  Serious: Yes (Hospitalization)
  Sender: FDA-Public Use
  Company Number: JP-GLAXOSMITHKLINE-B0864950A

PATIENT
  Age: 85 Year
  Sex: Male

DRUGS (4)
  1. PAXIL [Suspect]
     Indication: DEPRESSION
     Dosage: 10MG PER DAY
     Route: 048
     Dates: start: 201301, end: 201301
  2. PAXIL [Suspect]
     Indication: DEPRESSION
     Route: 048
     Dates: start: 201301, end: 201301
  3. PAXIL [Suspect]
     Indication: DEPRESSION
     Route: 048
     Dates: start: 201301, end: 201301
  4. PAXIL [Suspect]
     Indication: DEPRESSION
     Dosage: 10MG FOUR TIMES PER DAY
     Route: 048
     Dates: start: 201301

REACTIONS (3)
  - Psychiatric symptom [Recovered/Resolved]
  - Incontinence [Unknown]
  - Inappropriate schedule of drug administration [Unknown]
